FAERS Safety Report 18530632 (Version 2)
Quarter: 2020Q4

REPORT INFORMATION
  Report Type: Spontaneous
  Country: TW (occurrence: TW)
  Receive Date: 20201121
  Receipt Date: 20201201
  Transmission Date: 20210114
  Serious: Yes (Hospitalization)
  Sender: FDA-Public Use
  Company Number: TW-ACCORD-208477

PATIENT
  Age: 67 Year
  Sex: Male

DRUGS (5)
  1. LAMOTRIGINE. [Interacting]
     Active Substance: LAMOTRIGINE
     Indication: BIPOLAR I DISORDER
  2. VALPROIC ACID. [Interacting]
     Active Substance: VALPROIC ACID
     Indication: MANIC SYMPTOM
  3. RISPERIDONE. [Interacting]
     Active Substance: RISPERIDONE
     Indication: MANIC SYMPTOM
     Dosage: DECREASED TO 1.5 MG DAILY
  4. ARIPIPRAZOLE. [Suspect]
     Active Substance: ARIPIPRAZOLE
     Indication: BIPOLAR I DISORDER
  5. CLONAZEPAM. [Interacting]
     Active Substance: CLONAZEPAM
     Indication: MANIC SYMPTOM
     Dosage: AT BEDTIME

REACTIONS (2)
  - Drug interaction [Unknown]
  - Oedema peripheral [Recovered/Resolved]
